FAERS Safety Report 24440923 (Version 2)
Quarter: 2024Q4

REPORT INFORMATION
  Report Type: Report from Study
  Country: GB (occurrence: GB)
  Receive Date: 20241016
  Receipt Date: 20241017
  Transmission Date: 20250114
  Serious: No
  Sender: ROCHE
  Company Number: GB-ROCHE-3445582

PATIENT
  Age: 73 Year
  Sex: Male

DRUGS (8)
  1. HEMLIBRA [Suspect]
     Active Substance: EMICIZUMAB-KXWH
     Indication: Haemophilia
     Route: 065
     Dates: start: 20200625, end: 20230727
  2. NEVIRAPINE [Concomitant]
     Active Substance: NEVIRAPINE
  3. LAMIVUDINE [Concomitant]
     Active Substance: LAMIVUDINE
  4. ABACAVIR [Concomitant]
     Active Substance: ABACAVIR
  5. TRANEXAMIC ACID [Concomitant]
     Active Substance: TRANEXAMIC ACID
  6. ACYCLOVIR [Concomitant]
     Active Substance: ACYCLOVIR
  7. ESOMEPRAZOLE [Concomitant]
     Active Substance: ESOMEPRAZOLE
  8. CHLORAMPHENICOL [Concomitant]
     Active Substance: CHLORAMPHENICOL

REACTIONS (2)
  - Haemorrhage [Unknown]
  - Haemorrhage [Unknown]
